FAERS Safety Report 4753636-2 (Version None)
Quarter: 2005Q3

REPORT INFORMATION
  Report Type: 
  Country: None (occurrence: None)
  Receive Date: 20050824
  Receipt Date: 20050819
  Transmission Date: 20060218
  Serious: Yes (Hospitalization)
  Sender: FDA-Public Use
  Company Number: S05-FRA-02774-01

PATIENT
  Age: 70 Year
  Sex: Female

DRUGS (5)
  1. CITALOPRAM HYDROBROMIDE [Suspect]
     Indication: DEPRESSION
     Dates: start: 20050101
  2. PEGASYS [Suspect]
     Dosage: 1 QD SC
     Route: 058
     Dates: start: 20050101, end: 20050630
  3. TRAMADOL HCL [Suspect]
     Indication: PAIN
     Dosage: 2 UNK QD PO
     Route: 048
     Dates: start: 20050101
  4. PARACETAMOL [Suspect]
     Indication: PAIN
     Dosage: 2 QD PO
     Route: 048
     Dates: start: 20050101
  5. RIBAVIRIN [Concomitant]

REACTIONS (11)
  - ANGIOTENSIN CONVERTING ENZYME INCREASED [None]
  - ARTHRALGIA [None]
  - ASTHENIA [None]
  - BIOPSY BONE MARROW ABNORMAL [None]
  - CONDITION AGGRAVATED [None]
  - FIBROSIS [None]
  - HYPERHIDROSIS [None]
  - LEUKOPENIA [None]
  - PYREXIA [None]
  - THROMBOCYTOPENIA [None]
  - TUMOUR MARKER INCREASED [None]
